FAERS Safety Report 5167620-0 (Version None)
Quarter: 2006Q4

REPORT INFORMATION
  Report Type: 
  Country: None (occurrence: None)
  Receive Date: 20061207
  Receipt Date: 20061117
  Transmission Date: 20070319
  Serious: Yes (Other)
  Sender: FDA-Public Use
  Company Number: ZA-ABBOTT-06P-143-0351195-00

PATIENT
  Age: 59 Year
  Sex: Male

DRUGS (12)
  1. ULTANE [Suspect]
     Indication: ANAESTHESIA
     Dates: start: 20061108, end: 20061108
  2. ACETYLSALICYLIC ACID SRT [Concomitant]
     Indication: ISCHAEMIC HEART DISEASE PROPHYLAXIS
  3. ATORVASTATIN CALCIUM [Concomitant]
     Indication: BLOOD CHOLESTEROL INCREASED
  4. PROPOFOL [Concomitant]
     Indication: INDUCTION OF ANAESTHESIA
     Dates: start: 20061108, end: 20061108
  5. ROCURONIUM BROMIDE [Concomitant]
     Indication: INDUCTION OF ANAESTHESIA
     Dates: start: 20061108, end: 20061108
  6. ONDANSETRON HCL [Concomitant]
     Indication: DRUG USE FOR UNKNOWN INDICATION
     Dates: start: 20061108, end: 20061108
  7. REMIFENTANIL HYDROCHLORIDE [Concomitant]
     Indication: ANAESTHESIA
     Dates: start: 20061108, end: 20061108
  8. CEFAZOLIN SODIUM [Concomitant]
     Indication: DRUG USE FOR UNKNOWN INDICATION
     Dates: start: 20061108, end: 20061108
  9. CYCLIMORPH [Concomitant]
     Indication: PAIN
  10. LENTOGESIC [Concomitant]
     Indication: PAIN
  11. NITROUS OXIDE W/ OXYGEN [Concomitant]
     Indication: ANAESTHESIA
     Dates: start: 20061108, end: 20061108
  12. OXYGEN [Concomitant]
     Indication: DRUG USE FOR UNKNOWN INDICATION
     Dates: start: 20061108, end: 20061108

REACTIONS (5)
  - HEPATIC FAILURE [None]
  - HEPATOCELLULAR DAMAGE [None]
  - HYPOTENSION [None]
  - MALAISE [None]
  - NAUSEA [None]
